FAERS Safety Report 9265577 (Version 2)
Quarter: 2013Q4

REPORT INFORMATION
  Report Type: Spontaneous
  Country: GB (occurrence: GB)
  Receive Date: 20130501
  Receipt Date: 20131018
  Transmission Date: 20140711
  Serious: Yes (Hospitalization, Other)
  Sender: FDA-Public Use
  Company Number: GB-WATSON-2013-07302

PATIENT
  Age: 19 Year
  Sex: Male
  Weight: 69.85 kg

DRUGS (7)
  1. PROPRANOLOL (UNKNOWN) [Suspect]
     Indication: ASPERGER^S DISORDER
     Dosage: 20 MG, DAILY
     Route: 048
     Dates: start: 20090101
  2. DIAZEPAM (UNKNOWN) [Suspect]
     Indication: ASPERGER^S DISORDER
     Dosage: 5 MG, QID
     Route: 048
     Dates: start: 20090101
  3. ARIPIPRAZOLE (UNKNOWN) [Suspect]
     Indication: ASPERGER^S DISORDER
     Dosage: 30 MG, DAILY
     Route: 048
     Dates: start: 20090101
  4. PROCYCLIDINE [Suspect]
     Indication: ASPERGER^S DISORDER
     Dosage: 6 MG, DAILY
     Route: 048
     Dates: start: 20090101
  5. PROCYCLIDINE [Suspect]
     Indication: ASPERGER^S DISORDER
  6. LORAZEPAM (UNKNOWN) [Suspect]
     Indication: PRODUCT USED FOR UNKNOWN INDICATION
     Dosage: UNK UNK, UNKNOWN
     Route: 048
     Dates: start: 20090102
  7. HALOPERIDOL (UNKNOWN) [Suspect]
     Indication: ASPERGER^S DISORDER
     Dosage: 5 MG, DAILY
     Route: 048
     Dates: start: 20090101

REACTIONS (16)
  - Chest pain [Not Recovered/Not Resolved]
  - Dyspnoea [Not Recovered/Not Resolved]
  - Alopecia [Not Recovered/Not Resolved]
  - Anxiety [Not Recovered/Not Resolved]
  - Weight increased [Not Recovered/Not Resolved]
  - Aggression [Not Recovered/Not Resolved]
  - Local swelling [Not Recovered/Not Resolved]
  - Increased appetite [Not Recovered/Not Resolved]
  - Blister [Not Recovered/Not Resolved]
  - Rash [Not Recovered/Not Resolved]
  - Erythema [Not Recovered/Not Resolved]
  - Stress [Not Recovered/Not Resolved]
  - Vision blurred [Not Recovered/Not Resolved]
  - Feeling hot [Not Recovered/Not Resolved]
  - Back pain [Not Recovered/Not Resolved]
  - Headache [Not Recovered/Not Resolved]
